FAERS Safety Report 13278792 (Version 4)
Quarter: 2018Q3

REPORT INFORMATION
  Report Type: Report from Study
  Country: US (occurrence: US)
  Receive Date: 20170228
  Receipt Date: 20180920
  Transmission Date: 20181010
  Serious: Yes (Hospitalization)
  Sender: FDA-Public Use
  Company Number: US-ACTELION-A-US2017-150409

PATIENT
  Age: 79 Year
  Sex: Female
  Weight: 76.64 kg

DRUGS (4)
  1. MIDODRINE [Concomitant]
     Active Substance: MIDODRINE
     Dosage: 5 MG, UNK
  2. REVATIO [Concomitant]
     Active Substance: SILDENAFIL CITRATE
  3. ACTOS [Concomitant]
     Active Substance: PIOGLITAZONE HYDROCHLORIDE
  4. TRACLEER [Suspect]
     Active Substance: BOSENTAN
     Indication: PULMONARY HYPERTENSION
     Dosage: 125 MG, BID
     Route: 048
     Dates: start: 201304

REACTIONS (6)
  - Cardiac failure congestive [Unknown]
  - Intestinal resection [Unknown]
  - Condition aggravated [Unknown]
  - Acute kidney injury [Unknown]
  - Polyuria [Unknown]
  - Colon cancer [Unknown]
